FAERS Safety Report 8836281 (Version 1)
Quarter: 2012Q4

REPORT INFORMATION
  Report Type: 
  Country: US (occurrence: US)
  Receive Date: 20121011
  Receipt Date: 20121011
  Transmission Date: 20130627
  Serious: Yes (Other)
  Sender: FDA-Public Use
  Company Number: US-ROCHE-1136495

PATIENT
  Sex: Male
  Weight: 95.1 kg

DRUGS (3)
  1. NUTROPIN AQ [Suspect]
     Indication: GROWTH HORMONE DEFICIENCY
     Route: 058
     Dates: start: 20000128
  2. NUTROPIN AQ [Suspect]
     Dosage: 0.02 mg/kg/day, 5mg/ml-2 ml size
     Route: 058
     Dates: start: 20010312
  3. SYNTHROID [Concomitant]

REACTIONS (4)
  - Haematuria [Unknown]
  - Sluggishness [Unknown]
  - Fatigue [Unknown]
  - Myalgia [Unknown]
